FAERS Safety Report 9283217 (Version 1)
Quarter: 2013Q2

REPORT INFORMATION
  Report Type: Spontaneous
  Country: US (occurrence: US)
  Receive Date: 20130510
  Receipt Date: 20130510
  Transmission Date: 20140414
  Serious: Yes (Death)
  Sender: FDA-Public Use
  Company Number: US-GLAXOSMITHKLINE-A0988819A

PATIENT
  Age: 68 Year
  Sex: Female

DRUGS (1)
  1. TYKERB [Suspect]
     Indication: BREAST CANCER
     Dosage: 1250MG IN THE MORNING
     Route: 065
     Dates: start: 20120719

REACTIONS (3)
  - Dysphagia [Unknown]
  - Candida infection [Not Recovered/Not Resolved]
  - Death [Fatal]
